FAERS Safety Report 9795733 (Version 1)
Quarter: 2014Q1

REPORT INFORMATION
  Report Type: Report from Study
  Country: US (occurrence: US)
  Receive Date: 20140103
  Receipt Date: 20140103
  Transmission Date: 20141002
  Serious: No
  Sender: FDA-Public Use
  Company Number: PHEH2013US026459

PATIENT
  Sex: Female
  Weight: 65.76 kg

DRUGS (11)
  1. TASIGNA [Suspect]
     Indication: CHRONIC MYELOID LEUKAEMIA
     Dosage: 400 MG, BID
     Route: 048
  2. METFORMIN [Concomitant]
     Dosage: 1000 MG, UNK
  3. FENOFIBRATE [Concomitant]
     Dosage: 160 MG, UNK
  4. PANTOPRAZOLE [Concomitant]
     Dosage: 20 MG, UNK
  5. GLIMEPIRIDE [Concomitant]
     Dosage: 4 MG, UNK
  6. VIT D3 [Concomitant]
  7. HYDROXYZINE HCL [Concomitant]
     Dosage: 25 MG, UNK
  8. TRAMADOL HCL [Concomitant]
     Dosage: 300 MG, UNK
  9. FLEXERIL [Concomitant]
     Dosage: 10 MG, UNK
  10. PROMETHAZINE HYDROCHLORIDE [Concomitant]
     Dosage: 12.5 MG, UNK
  11. JANUVIA [Concomitant]
     Dosage: 100 MG, UNK

REACTIONS (5)
  - Amnesia [Unknown]
  - Alopecia [Unknown]
  - Fatigue [Unknown]
  - Vomiting [Unknown]
  - Diarrhoea [Unknown]
